FAERS Safety Report 19658796 (Version 3)
Quarter: 2021Q3

REPORT INFORMATION
  Report Type: Spontaneous
  Country: US (occurrence: US)
  Receive Date: 20210804
  Receipt Date: 20210830
  Transmission Date: 20211014
  Serious: No
  Sender: FDA-Public Use
  Company Number: US-PFIZER INC-2021714970

PATIENT
  Age: 55 Year
  Sex: Female
  Weight: 63.5 kg

DRUGS (7)
  1. TIZANIDINE. [Concomitant]
     Active Substance: TIZANIDINE
     Dosage: UNK
  2. LEXAPRO [Concomitant]
     Active Substance: ESCITALOPRAM OXALATE
     Dosage: UNK
  3. NUCYNTA ER [Concomitant]
     Active Substance: TAPENTADOL HYDROCHLORIDE
     Dosage: UNK
  4. XELJANZ [Suspect]
     Active Substance: TOFACITINIB CITRATE
     Indication: RHEUMATOID ARTHRITIS
     Dosage: 5 MG, 2X/DAY (I TAKE 5 MG AT MORNING 5 MG AT NIGHT.)
     Route: 048
     Dates: start: 2020
  5. LUNESTA [Concomitant]
     Active Substance: ESZOPICLONE
     Dosage: UNK
  6. SENNA?S [DOCUSATE SODIUM;SENNA ALEXANDRINA] [Concomitant]
     Dosage: UNK
  7. XELJANZ [Suspect]
     Active Substance: TOFACITINIB CITRATE
     Dosage: 5 MG, 2X/DAY

REACTIONS (2)
  - Post procedural infection [Unknown]
  - Fungal infection [Unknown]
